FAERS Safety Report 10716397 (Version 1)
Quarter: 2015Q1

REPORT INFORMATION
  Report Type: Spontaneous
  Country: US (occurrence: US)
  Receive Date: 20150116
  Receipt Date: 20150116
  Transmission Date: 20150721
  Serious: Yes (Other)
  Sender: FDA-Public Use
  Company Number: US-BAYER-2015-003656

PATIENT
  Age: 25 Year
  Sex: Female

DRUGS (1)
  1. MIRENA [Suspect]
     Active Substance: LEVONORGESTREL
     Dosage: 20 MCG/24HR, CONT
     Route: 015
     Dates: start: 20150107

REACTIONS (5)
  - Loss of consciousness [None]
  - Neck injury [None]
  - Complication of device insertion [None]
  - Head injury [None]
  - Laceration [None]

NARRATIVE: CASE EVENT DATE: 20150107
